FAERS Safety Report 7326375-1 (Version None)
Quarter: 2011Q1

REPORT INFORMATION
  Report Type: 
  Country: None (occurrence: None)
  Receive Date: 20110302
  Receipt Date: 20110216
  Transmission Date: 20110831
  Serious: Yes (Hospitalization)
  Sender: FDA-Public Use
  Company Number: FR-CELGENEUS-056-C5013-11010296

PATIENT
  Sex: Male
  Weight: 79 kg

DRUGS (23)
  1. CC-5013\PLACEBO [Suspect]
     Dosage: 20 MILLIGRAM
     Route: 048
     Dates: start: 20101214, end: 20110104
  2. FORLAX [Concomitant]
     Indication: CONSTIPATION
     Route: 048
     Dates: start: 20100920
  3. PREVISCAN [Concomitant]
     Indication: ATRIAL FLUTTER
     Route: 048
     Dates: start: 20101102
  4. AUGMENTIN '125' [Concomitant]
     Indication: LUNG INFECTION
     Dosage: 3 GRAM
     Route: 048
     Dates: start: 20101220, end: 20101227
  5. DOCETAXEL [Suspect]
     Dosage: 146.3 MILLIGRAM
     Route: 065
     Dates: start: 20101214, end: 20110104
  6. LOVENOX [Concomitant]
     Indication: ATRIAL FLUTTER
     Dosage: 1.6 MILLIGRAM
     Route: 058
     Dates: start: 20101103
  7. PREDNISONE [Suspect]
     Indication: PROSTATE CANCER
     Dosage: 10 MILLIGRAM
     Route: 065
     Dates: start: 20101012
  8. TRIATEC [Concomitant]
     Dosage: 5.15 MILLIGRAM
     Route: 048
     Dates: start: 19900101
  9. AUGMENTIN '125' [Concomitant]
     Indication: NEUTROPENIA
  10. DOCETAXEL [Suspect]
     Indication: PROSTATE CANCER
     Dosage: 148.5 MILLIGRAM
     Route: 065
     Dates: start: 20101012
  11. PRAVASTATIN [Concomitant]
     Dosage: 40 MILLIGRAM
     Route: 048
     Dates: start: 19900101
  12. LASIX [Concomitant]
     Dosage: 40 MILLIGRAM
     Route: 048
     Dates: start: 20101102
  13. BRICANYL [Concomitant]
     Indication: COUGH
     Dosage: 5 MILLIGRAM
     Route: 055
     Dates: start: 20101025
  14. CARDENSIEL [Concomitant]
     Indication: ATRIAL FLUTTER
     Dosage: 2.5 MILLIGRAM
     Route: 048
     Dates: start: 20101102
  15. GLIBENCLAMIDE [Concomitant]
     Dosage: 5 MILLIGRAM
     Route: 048
     Dates: start: 20101105
  16. PREDNISONE [Suspect]
     Dosage: 10 MILLIGRAM
     Route: 065
     Dates: start: 20101214, end: 20110104
  17. METFORMIN [Concomitant]
     Dosage: 1000 MILLIGRAM
     Route: 048
     Dates: start: 19900101
  18. CACIT D3 [Concomitant]
     Indication: OSTEOPOROSIS PROPHYLAXIS
     Dosage: 1000 MILLIGRAM
     Route: 048
     Dates: start: 19900101
  19. EFFERALGAN CODEINE [Concomitant]
     Dosage: 1500 MILLIGRAM
     Route: 048
     Dates: start: 20100917
  20. EPREX [Concomitant]
     Dosage: 5714.2857 IU (INTERNATIONAL UNIT)
     Route: 058
     Dates: start: 20101214
  21. CC-5013\PLACEBO [Suspect]
     Indication: PROSTATE CANCER
     Dosage: 25 MILLIGRAM
     Route: 048
     Dates: start: 20101012
  22. PLAVIX [Concomitant]
     Indication: ARTERITIS
     Dosage: 75 MILLIGRAM
     Route: 048
     Dates: start: 19900101
  23. TOPLEXIL [Concomitant]
     Indication: COUGH
     Dosage: 40 MILLILITER
     Route: 048
     Dates: start: 20101025

REACTIONS (2)
  - PERFORMANCE STATUS DECREASED [None]
  - HYPERGLYCAEMIA [None]
